FAERS Safety Report 18146770 (Version 5)
Quarter: 2020Q4

REPORT INFORMATION
  Report Type: Spontaneous
  Country: US (occurrence: US)
  Receive Date: 20200813
  Receipt Date: 20201202
  Transmission Date: 20210113
  Serious: Yes (Hospitalization, Other)
  Sender: FDA-Public Use
  Company Number: US-SA-2020SA209931

PATIENT

DRUGS (14)
  1. AMBIEN [Suspect]
     Active Substance: ZOLPIDEM TARTRATE
     Dosage: UNK UNK, HS
     Route: 065
  2. GOCOVRI [Suspect]
     Active Substance: AMANTADINE
     Indication: DYSKINESIA
     Dosage: 68.5 MG, QD
     Route: 065
     Dates: start: 20200530, end: 20200608
  3. DOPAMINE [Concomitant]
     Active Substance: DOPAMINE HYDROCHLORIDE
  4. TRAZODONE [Concomitant]
     Active Substance: TRAZODONE HYDROCHLORIDE
     Dosage: UNK
  5. RYTARY [Concomitant]
     Active Substance: CARBIDOPA\LEVODOPA
     Dosage: 23-75 MG
  6. LEXAPRO [Concomitant]
     Active Substance: ESCITALOPRAM OXALATE
  7. FIBER [Concomitant]
     Active Substance: PSYLLIUM HUSK
  8. PANTOPRAZOLE SODIUM. [Concomitant]
     Active Substance: PANTOPRAZOLE SODIUM
  9. MULTIPLE VITAMIN [Concomitant]
     Active Substance: VITAMINS
  10. GOCOVRI [Suspect]
     Active Substance: AMANTADINE
     Dosage: 68.5 MG, HS
     Route: 048
     Dates: start: 20200721
  11. LINZESS [Concomitant]
     Active Substance: LINACLOTIDE
  12. OMEGA-3 NOS [Concomitant]
     Active Substance: OMEGA-3 FATTY ACIDS
  13. TYLENOL [Concomitant]
     Active Substance: ACETAMINOPHEN
  14. VITAMIN D3 [Concomitant]
     Active Substance: CHOLECALCIFEROL

REACTIONS (9)
  - Joint dislocation [Not Recovered/Not Resolved]
  - Joint dislocation reduction [Unknown]
  - Fall [Unknown]
  - Weight decreased [Unknown]
  - Hypophagia [Unknown]
  - Hip arthroplasty [Recovering/Resolving]
  - Abdominal pain upper [Recovering/Resolving]
  - Abdominal pain [Recovering/Resolving]
  - Somnambulism [Unknown]

NARRATIVE: CASE EVENT DATE: 202005
